FAERS Safety Report 18737044 (Version 6)
Quarter: 2021Q1

REPORT INFORMATION
  Report Type: Spontaneous
  Country: US (occurrence: US)
  Receive Date: 20210113
  Receipt Date: 20210325
  Transmission Date: 20210419
  Serious: Yes (Life-Threatening)
  Sender: FDA-Public Use
  Company Number: US-GLAXOSMITHKLINE-US2021AMR001757

PATIENT
  Sex: Female

DRUGS (5)
  1. ZEJULA [Suspect]
     Active Substance: NIRAPARIB
     Dosage: 200 MG, QD
     Dates: end: 20210324
  2. ZEJULA [Suspect]
     Active Substance: NIRAPARIB
     Indication: OVARIAN CANCER
     Dosage: 100 MG, BID
     Dates: start: 20201229
  3. ZEJULA [Suspect]
     Active Substance: NIRAPARIB
     Dosage: 100 MG, QD
     Route: 048
  4. ZEJULA [Suspect]
     Active Substance: NIRAPARIB
     Dosage: 200 MG, QD
     Route: 048
  5. ZEJULA [Suspect]
     Active Substance: NIRAPARIB
     Dosage: 100 MG, BID (100MG EVERY MORNING AND 100MG EVERY EVENING)

REACTIONS (22)
  - Performance status decreased [Unknown]
  - Wound haemorrhage [Unknown]
  - Ill-defined disorder [Unknown]
  - Dyspepsia [Unknown]
  - Drug monitoring procedure incorrectly performed [Unknown]
  - Central venous catheterisation [Unknown]
  - Vomiting [Not Recovered/Not Resolved]
  - Overdose [Unknown]
  - Constipation [Unknown]
  - Inappropriate schedule of product administration [Unknown]
  - Memory impairment [Not Recovered/Not Resolved]
  - Nausea [Not Recovered/Not Resolved]
  - Skin laceration [Unknown]
  - Amnesia [Unknown]
  - Skin discolouration [Unknown]
  - Drug intolerance [Unknown]
  - Illness [Unknown]
  - Adverse drug reaction [Recovered/Resolved]
  - Headache [Unknown]
  - Product confusion [Unknown]
  - Decreased appetite [Not Recovered/Not Resolved]
  - Pain [Unknown]
